FAERS Safety Report 7460315-X (Version None)
Quarter: 2011Q2

REPORT INFORMATION
  Report Type: 
  Country: None (occurrence: None)
  Receive Date: 20110505
  Receipt Date: 20110429
  Transmission Date: 20111010
  Serious: Yes (Hospitalization, Disabling)
  Sender: FDA-Public Use
  Company Number: A0853521A

PATIENT
  Age: 59 Year
  Sex: Female
  Weight: 86.4 kg

DRUGS (11)
  1. MAGNESIUM OXIDE [Concomitant]
  2. AVANDIA [Suspect]
     Indication: DIABETES MELLITUS
     Dosage: 4MG PER DAY
     Route: 048
     Dates: end: 20080117
  3. LANTUS [Concomitant]
  4. ASPIRIN [Concomitant]
  5. HYDROCHLOROTHIAZIDE [Concomitant]
  6. POTASSIUM [Concomitant]
  7. METFORMIN [Concomitant]
  8. FELODIPINE [Concomitant]
  9. LEXAPRO [Concomitant]
  10. LEVOTHYROXINE SODIUM [Concomitant]
  11. BROMPHENIRAMINE [Concomitant]

REACTIONS (2)
  - MYOCARDIAL INFARCTION [None]
  - CARDIAC DISORDER [None]
